FAERS Safety Report 4584998-7 (Version None)
Quarter: 2005Q1

REPORT INFORMATION
  Report Type: 
  Country: None (occurrence: None)
  Receive Date: 20050217
  Receipt Date: 20041202
  Transmission Date: 20050727
  Serious: Yes (Other)
  Sender: FDA-Public Use
  Company Number: US-GLAXOSMITHKLINE-A0535876A

PATIENT
  Age: 43 Year
  Sex: Female

DRUGS (5)
  1. WELLBUTRIN XL [Suspect]
     Indication: ILL-DEFINED DISORDER
     Dosage: 300MG PER DAY
     Route: 048
     Dates: start: 20031218
  2. ADDERALL XR 10 [Concomitant]
     Dosage: 60MG PER DAY
     Dates: start: 20040101
  3. PROZAC [Concomitant]
     Dosage: 60MG PER DAY
     Dates: start: 20040206
  4. ALPRAZOLAM [Concomitant]
     Dosage: 1TAB TWICE PER DAY
     Dates: start: 20040206
  5. AMBIEN [Concomitant]
     Dosage: 10MG PER DAY
     Dates: start: 20040206

REACTIONS (1)
  - GRAND MAL CONVULSION [None]
